FAERS Safety Report 7259914 (Version 2)
Quarter: 2016Q2

REPORT INFORMATION
  Report Type: Spontaneous
  Country: US (occurrence: US)
  Receive Date: 20100128
  Receipt Date: 20160510
  Transmission Date: 20160815
  Serious: Yes (Death, Other)
  Sender: FDA-Public Use
  Company Number: US-CELGENEUS-163-50794-10011562

PATIENT

DRUGS (6)
  1. VIDAZA [Suspect]
     Active Substance: AZACITIDINE
     Indication: MYELODYSPLASTIC SYNDROME
     Route: 041
  2. VIDAZA [Suspect]
     Active Substance: AZACITIDINE
     Indication: CHRONIC MYELOMONOCYTIC LEUKAEMIA
     Route: 058
  3. ETANERCEPT [Suspect]
     Active Substance: ETANERCEPT
     Indication: CHRONIC MYELOMONOCYTIC LEUKAEMIA
  4. RED BLOOD CELLS [Concomitant]
     Active Substance: HUMAN RED BLOOD CELL
     Indication: PRODUCT USED FOR UNKNOWN INDICATION
     Route: 041
  5. ETANERCEPT [Suspect]
     Active Substance: ETANERCEPT
     Indication: MYELODYSPLASTIC SYNDROME
     Route: 058
  6. GRANULOCYTE COLONY STIMULATING FACTOR [Concomitant]
     Active Substance: GRANULOCYTE COLONY-STIMULATING FACTOR NOS
     Indication: PRODUCT USED FOR UNKNOWN INDICATION
     Route: 065

REACTIONS (12)
  - Infection [Fatal]
  - Hypotension [Unknown]
  - Myocardial infarction [Unknown]
  - Pneumonia [Unknown]
  - Thrombocytopenia [Unknown]
  - Sepsis [Unknown]
  - Cytopenia [Unknown]
  - Neutropenia [Unknown]
  - Endocarditis [Unknown]
  - Disease progression [Fatal]
  - Haemorrhage intracranial [Unknown]
  - Myalgia [Unknown]
